FAERS Safety Report 5900839-7 (Version None)
Quarter: 2008Q3

REPORT INFORMATION
  Report Type: 
  Country: None (occurrence: None)
  Receive Date: 20080925
  Receipt Date: 20080919
  Transmission Date: 20090109
  Serious: Yes (Other)
  Sender: FDA-Public Use
  Company Number: 2008EN000136

PATIENT
  Age: 30 Year
  Sex: Male

DRUGS (12)
  1. ABELCET [Suspect]
     Indication: EVIDENCE BASED TREATMENT
     Dosage: 450 MG;QD;IV
     Route: 042
     Dates: start: 20080622, end: 20080623
  2. NYSTAFORM [Concomitant]
  3. LEUCOVORIN CALCIUM [Concomitant]
  4. MORPHINE [Concomitant]
  5. OMEPRAZOLE [Concomitant]
  6. COMBIVENT [Concomitant]
  7. HEPARIN [Concomitant]
  8. MIDAZOLAM HCL [Concomitant]
  9. MERONEM [Concomitant]
  10. NICOTINE [Concomitant]
  11. CLONIDINE [Concomitant]
  12. PABRINEX [Concomitant]

REACTIONS (5)
  - BLOOD PRESSURE INCREASED [None]
  - BODY TEMPERATURE INCREASED [None]
  - CHILLS [None]
  - OXYGEN SATURATION DECREASED [None]
  - RESPIRATORY RATE INCREASED [None]
